FAERS Safety Report 14405952 (Version 1)
Quarter: 2018Q1

REPORT INFORMATION
  Report Type: Spontaneous
  Country: US (occurrence: US)
  Receive Date: 20180118
  Receipt Date: 20180118
  Transmission Date: 20180509
  Serious: No
  Sender: FDA-Public Use
  Company Number: US-JNJFOC-20171219098

PATIENT
  Age: 66 Year
  Sex: Male
  Weight: 66.68 kg

DRUGS (1)
  1. RISPERDAL CONSTA [Suspect]
     Active Substance: RISPERIDONE
     Indication: SCHIZOAFFECTIVE DISORDER
     Route: 042

REACTIONS (2)
  - Incorrect route of drug administration [Unknown]
  - Underdose [Unknown]

NARRATIVE: CASE EVENT DATE: 20171214
